FAERS Safety Report 25852832 (Version 3)
Quarter: 2025Q4

REPORT INFORMATION
  Report Type: Spontaneous
  Country: KW (occurrence: KW)
  Receive Date: 20250926
  Receipt Date: 20251124
  Transmission Date: 20260117
  Serious: Yes (Hospitalization, Other)
  Sender: PFIZER
  Company Number: KW-PFIZER INC-PV202500106069

PATIENT
  Age: 55 Year
  Sex: Female

DRUGS (5)
  1. ZIRABEV [Suspect]
     Active Substance: BEVACIZUMAB-BVZR
     Indication: Ovarian epithelial cancer metastatic
     Dosage: 1200 MG, EVERY 2 WEEKS
     Route: 042
     Dates: start: 202507
  2. ZIRABEV [Suspect]
     Active Substance: BEVACIZUMAB-BVZR
     Indication: Fallopian tube cancer
     Dosage: 1200 MG, EVERY 3  WEEKS
     Route: 042
     Dates: start: 2025
  3. ZIRABEV [Suspect]
     Active Substance: BEVACIZUMAB-BVZR
     Dosage: 1215 MG, EVERY 21 DAYS (EVERY 3 WEEKS)
     Route: 042
     Dates: start: 2025
  4. ZIRABEV [Suspect]
     Active Substance: BEVACIZUMAB-BVZR
     Dosage: 1200 MG, EVERY 3  WEEKS
     Route: 042
     Dates: start: 2025
  5. ZIRABEV [Suspect]
     Active Substance: BEVACIZUMAB-BVZR
     Dosage: UNK
     Route: 042
     Dates: start: 20251008, end: 20251008

REACTIONS (8)
  - Hypersensitivity [Unknown]
  - Peritumoural oedema [Unknown]
  - Metastases to lung [Unknown]
  - Arthralgia [Unknown]
  - Abdominal pain upper [Unknown]
  - Fatigue [Unknown]
  - Drug hypersensitivity [Unknown]
  - Weight decreased [Unknown]

NARRATIVE: CASE EVENT DATE: 20250101
